FAERS Safety Report 10088903 (Version 1)
Quarter: 2014Q2

REPORT INFORMATION
  Report Type: Spontaneous
  Country: DK (occurrence: DK)
  Receive Date: 20140421
  Receipt Date: 20140421
  Transmission Date: 20141212
  Serious: Yes (Hospitalization)
  Sender: FDA-Public Use
  Company Number: DK-JNJFOC-20140410365

PATIENT
  Age: 82 Year
  Sex: Male

DRUGS (1)
  1. XARELTO [Suspect]
     Indication: THROMBOSIS PROPHYLAXIS
     Route: 048
     Dates: start: 20140210, end: 20140220

REACTIONS (3)
  - Gouty arthritis [Unknown]
  - Local swelling [Unknown]
  - Joint swelling [Unknown]
